FAERS Safety Report 21223702 (Version 2)
Quarter: 2022Q3

REPORT INFORMATION
  Report Type: Spontaneous
  Country: US (occurrence: US)
  Receive Date: 20220817
  Receipt Date: 20220826
  Transmission Date: 20221027
  Serious: No
  Sender: FDA-Public Use
  Company Number: US-AIMMUNE THERAPEUTICS, INC.-2022AIMT00615

PATIENT

DRUGS (8)
  1. PALFORZIA [Suspect]
     Active Substance: PEANUT
     Indication: Food allergy
     Dosage: IDE (0.5-6MG), ONCE
     Route: 048
  2. PALFORZIA [Suspect]
     Active Substance: PEANUT
     Dosage: 300 MG, 1X/DAY
     Route: 048
     Dates: start: 202104, end: 20220727
  3. PALFORZIA [Suspect]
     Active Substance: PEANUT
     Dosage: 300 MG, ONCE, LAST DOSE PRIOR TO EVENTS OF FACIAL SWELLING, STRIDOR, WHEEZING, SHORTNESS OF BREATH A
     Route: 048
     Dates: start: 20220727, end: 20220727
  4. PALFORZIA [Suspect]
     Active Substance: PEANUT
     Dosage: A HALF FROM 300 MG, 1X/DAY, DOSE DECREASED
     Route: 048
     Dates: start: 20220728, end: 2022
  5. PALFORZIA [Suspect]
     Active Substance: PEANUT
     Dosage: A HALF FROM 300 MG, ONCE, LAST DOSE PRIOR THE EVENT OF UNKNOWN MINOR REACTION
     Route: 048
     Dates: start: 2022, end: 2022
  6. PALFORZIA [Suspect]
     Active Substance: PEANUT
     Dosage: A QUARTER FROM 300 MG, 1X/DAY, PRIOR TO THE EVENT OF AN UNKNOWN MINOR REACTION
     Route: 048
     Dates: start: 2022, end: 20220809
  7. PALFORZIA [Suspect]
     Active Substance: PEANUT
     Dosage: 80 MG, 1X/DAY
     Route: 048
     Dates: start: 20220810, end: 20220816
  8. PALFORZIA [Suspect]
     Active Substance: PEANUT
     Dosage: 120 MG, 1X/DAY
     Route: 048
     Dates: start: 20220817

REACTIONS (9)
  - Swelling face [Recovered/Resolved]
  - Stridor [Recovered/Resolved]
  - Product administration error [Recovered/Resolved]
  - Adverse reaction [Recovered/Resolved]
  - Throat clearing [Recovered/Resolved]
  - Throat irritation [Recovered/Resolved]
  - Wheezing [Recovered/Resolved]
  - Dyspnoea [Recovered/Resolved]
  - Throat tightness [Recovered/Resolved]

NARRATIVE: CASE EVENT DATE: 20220101
